FAERS Safety Report 16279493 (Version 2)
Quarter: 2019Q2

REPORT INFORMATION
  Report Type: Spontaneous
  Country: US (occurrence: US)
  Receive Date: 20190507
  Receipt Date: 20190618
  Transmission Date: 20190711
  Serious: No
  Sender: FDA-Public Use
  Company Number: US-SHIRE-US201914599

PATIENT
  Age: 83 Year
  Sex: Female

DRUGS (2)
  1. XIIDRA [Suspect]
     Active Substance: LIFITEGRAST
     Dosage: UNK, 1X/DAY:QD
     Route: 047
     Dates: start: 20190612
  2. XIIDRA [Suspect]
     Active Substance: LIFITEGRAST
     Indication: PRODUCT USED FOR UNKNOWN INDICATION
     Dosage: UNK
     Route: 047
     Dates: start: 20190411

REACTIONS (4)
  - Eye swelling [Unknown]
  - Vision blurred [Unknown]
  - Dysgeusia [Unknown]
  - Eye irritation [Unknown]

NARRATIVE: CASE EVENT DATE: 20190411
